FAERS Safety Report 6312434-9 (Version None)
Quarter: 2009Q3

REPORT INFORMATION
  Report Type: 
  Country: None (occurrence: None)
  Receive Date: 20090817
  Receipt Date: 20090805
  Transmission Date: 20100115
  Serious: Yes (Other)
  Sender: FDA-Public Use
  Company Number: GB-JNJCH-2009021501

PATIENT
  Age: 79 Year
  Sex: Male

DRUGS (20)
  1. PHENYLEPHRINE [Suspect]
     Indication: CATARACT OPERATION
     Dosage: TEXT:10 % UNSPECIFIED
     Route: 065
     Dates: start: 20080319, end: 20080319
  2. ADRENALINE [Suspect]
     Indication: CATARACT OPERATION
     Dosage: TEXT:UNSPECIFIED
     Route: 065
     Dates: start: 20080319, end: 20090319
  3. CEFUROXIME [Suspect]
     Indication: CATARACT OPERATION
     Dosage: TEXT:250 MG
     Route: 065
     Dates: start: 20080319, end: 20090319
  4. HYALURONATE SODIUM [Suspect]
     Indication: CATARACT OPERATION
     Dosage: TEXT:UNSPECIFIED
     Route: 065
     Dates: start: 20080319, end: 20080319
  5. BALANCED SALT [Suspect]
     Indication: CATARACT OPERATION
     Dosage: TEXT:UNSPECIFIED
     Route: 065
     Dates: start: 20080319, end: 20080319
  6. ASPIRIN [Concomitant]
     Indication: DRUG USE FOR UNKNOWN INDICATION
     Dosage: TEXT:75 MG
     Route: 048
  7. ATENOLOL [Concomitant]
     Indication: DRUG USE FOR UNKNOWN INDICATION
     Dosage: TEXT:50 MG
     Route: 048
  8. CYCLOPENTOLATE HCL [Concomitant]
     Indication: CYCLOPLEGIA
     Dosage: TEXT:1 % UNSPECIFIED
     Route: 047
     Dates: start: 20080319, end: 20080319
  9. DIAMOX [Concomitant]
     Indication: DRUG USE FOR UNKNOWN INDICATION
     Dosage: TEXT:250 MG
     Route: 065
     Dates: start: 20080319, end: 20080319
  10. GLICLAZIDE [Concomitant]
     Indication: DRUG USE FOR UNKNOWN INDICATION
     Dosage: TEXT:80 MG
     Route: 048
  11. HYALASE [Concomitant]
     Indication: LOCAL ANAESTHESIA
     Dosage: TEXT:UNSPECIFIED
     Route: 065
     Dates: start: 20080319, end: 20080319
  12. LIGNOCAINE [Concomitant]
     Indication: LOCAL ANAESTHESIA
     Dosage: TEXT:2% UNSPECIFIED
     Route: 065
     Dates: start: 20080319, end: 20080319
  13. MAXITROL [Concomitant]
     Indication: DRUG USE FOR UNKNOWN INDICATION
     Dosage: TEXT:UNSPECIFIED 3 DAILY
     Route: 047
  14. METFORMIN [Concomitant]
     Indication: DRUG USE FOR UNKNOWN INDICATION
     Dosage: TEXT:UNSPECIFIED
     Route: 048
  15. PHENYLEPHRINE [Concomitant]
     Indication: MYDRIASIS
     Dosage: TEXT:10 % UNSPECIFIED
     Route: 047
     Dates: start: 20090319, end: 20090319
  16. POVIDONE IODINE [Concomitant]
     Indication: DRUG USE FOR UNKNOWN INDICATION
     Dosage: TEXT:UNSPECIFIED
     Route: 061
     Dates: start: 20080319, end: 20080319
  17. RAMIPRIL [Concomitant]
     Indication: DRUG USE FOR UNKNOWN INDICATION
     Dosage: TEXT:UNSPECIFIED
     Route: 048
  18. SIMVASTATIN [Concomitant]
     Indication: DRUG USE FOR UNKNOWN INDICATION
     Dosage: TEXT:UNSPECIFIED
     Route: 048
  19. VOLTAREN [Concomitant]
     Indication: DRUG USE FOR UNKNOWN INDICATION
     Dosage: TEXT:UNSPECIFIED
     Route: 047
     Dates: start: 20080319, end: 20080319
  20. WATER FOR INJECTION [Concomitant]
     Indication: MEDICATION DILUTION
     Dosage: TEXT:UNSPECIFIED
     Route: 065
     Dates: start: 20080319, end: 20080319

REACTIONS (2)
  - RETINOGRAM ABNORMAL [None]
  - VISUAL ACUITY REDUCED [None]
